FAERS Safety Report 23221149 (Version 1)
Quarter: 2023Q4

REPORT INFORMATION
  Report Type: Spontaneous
  Country: IN (occurrence: IN)
  Receive Date: 20231123
  Receipt Date: 20231123
  Transmission Date: 20240109
  Serious: Yes (Hospitalization, Other)
  Sender: FDA-Public Use
  Company Number: IN-GLAXOSMITHKLINE-INCH2023HLN018150

PATIENT

DRUGS (4)
  1. UNSPECIFIED INGREDIENT [Suspect]
     Active Substance: UNSPECIFIED INGREDIENT
     Indication: Foetal exposure during pregnancy
     Dosage: UNK, 20 VIALS
     Route: 064
  2. DICLOFENAC [Suspect]
     Active Substance: DICLOFENAC
     Indication: Foetal exposure during pregnancy
     Dosage: UNKMATERNAL DOSE AT EXPOSURE: UNK
     Route: 064
  3. ACETAMINOPHEN [Suspect]
     Active Substance: ACETAMINOPHEN
     Indication: Foetal exposure during pregnancy
     Dosage: MATERNAL DOSE AT EXPOSURE: UNK
     Route: 064
  4. ROPIVACAINE [Suspect]
     Active Substance: ROPIVACAINE
     Indication: Foetal exposure during pregnancy
     Dosage: MATERNAL DOSE: 3.5 ML
     Route: 064

REACTIONS (4)
  - Premature baby [Unknown]
  - Foetal distress syndrome [Recovered/Resolved]
  - Neonatal respiratory distress [Recovered/Resolved]
  - Foetal exposure during pregnancy [Unknown]
